FAERS Safety Report 9701372 (Version 2)
Quarter: 2015Q3

REPORT INFORMATION
  Report Type: Spontaneous
  Country: US (occurrence: US)
  Receive Date: 20131121
  Receipt Date: 20150803
  Transmission Date: 20151125
  Serious: No
  Sender: FDA-Public Use
  Company Number: US-GILEAD-2008-0016659

PATIENT
  Age: 63 Year
  Sex: Female
  Weight: 86.18 kg

DRUGS (17)
  1. LETAIRIS [Suspect]
     Active Substance: AMBRISENTAN
     Indication: PULMONARY ARTERIAL HYPERTENSION
     Route: 048
     Dates: start: 20080414
  2. COUMADIN [Concomitant]
     Active Substance: WARFARIN SODIUM
     Route: 048
  3. CALCIUM [Concomitant]
     Active Substance: CALCIUM
     Route: 048
  4. VITAMIN B COMPLEX [Concomitant]
     Active Substance: CYANOCOBALAMIN\DEXPANTHENOL\NIACINAMIDE\PYRIDOXINE HYDROCHLORIDE\RIBOFLAVIN 5^-PHOSPHATE SODIUM\THIAMINE HYDROCHLORIDE\VITAMIN B COMPLEX
     Route: 048
  5. SYNTHROID [Concomitant]
     Active Substance: LEVOTHYROXINE SODIUM
     Route: 048
  6. CLARINEX [Concomitant]
     Active Substance: DESLORATADINE
     Route: 048
  7. DIGOXIN. [Concomitant]
     Active Substance: DIGOXIN
     Route: 048
  8. EVISTA [Concomitant]
     Active Substance: RALOXIFENE HYDROCHLORIDE
     Route: 048
  9. ATENOLOL. [Concomitant]
     Active Substance: ATENOLOL
     Route: 048
  10. PARACETAMOL/TRAMADOL HYDROCHLORIDE [Concomitant]
     Route: 048
  11. ALLOPURINOL. [Concomitant]
     Active Substance: ALLOPURINOL
     Route: 048
  12. POTASSIUM CHLORIDE. [Concomitant]
     Active Substance: POTASSIUM CHLORIDE
     Route: 048
  13. REVATIO [Concomitant]
     Active Substance: SILDENAFIL CITRATE
     Route: 048
  14. DEMADEX [Concomitant]
     Active Substance: TORSEMIDE
     Route: 048
  15. PROTONIX [Concomitant]
     Active Substance: PANTOPRAZOLE SODIUM
     Route: 048
  16. PREDNISONE. [Concomitant]
     Active Substance: PREDNISONE
     Route: 048
  17. VITAMIN C [Concomitant]
     Active Substance: ASCORBIC ACID
     Route: 048

REACTIONS (1)
  - Fluid retention [Unknown]
